FAERS Safety Report 5353529-6 (Version None)
Quarter: 2007Q2

REPORT INFORMATION
  Report Type: 
  Country: None (occurrence: None)
  Receive Date: 20070612
  Receipt Date: 20070531
  Transmission Date: 20071010
  Serious: Yes (Other)
  Sender: FDA-Public Use
  Company Number: US-ASTRAZENECA-2006UW10853

PATIENT
  Sex: Female
  Weight: 51.4 kg

DRUGS (4)
  1. SEROQUEL [Suspect]
     Indication: DEPRESSION
     Route: 048
     Dates: start: 19990101, end: 20010101
  2. SEROQUEL [Suspect]
     Indication: SLEEP DISORDER
     Route: 048
     Dates: start: 19990101, end: 20010101
  3. SEROQUEL [Suspect]
     Route: 048
     Dates: start: 20020102, end: 20030501
  4. SEROQUEL [Suspect]
     Route: 048
     Dates: start: 20020102, end: 20030501

REACTIONS (2)
  - DIABETES MELLITUS [None]
  - DIABETIC COMA [None]
